FAERS Safety Report 7083466-0 (Version None)
Quarter: 2010Q4

REPORT INFORMATION
  Report Type: 
  Country: None (occurrence: None)
  Receive Date: 20101104
  Receipt Date: 20101026
  Transmission Date: 20110411
  Serious: Yes (Hospitalization)
  Sender: FDA-Public Use
  Company Number: B0682428A

PATIENT
  Sex: Female

DRUGS (8)
  1. LANOXIN [Suspect]
     Indication: ATRIAL FIBRILLATION
     Dosage: 1TAB PER DAY
     Route: 065
     Dates: start: 20080101, end: 20101020
  2. COUMADIN [Concomitant]
     Indication: ATRIAL FIBRILLATION
     Dosage: 5MG PER DAY
     Route: 065
     Dates: start: 20080101
  3. FLIXOTIDE [Concomitant]
     Route: 065
  4. LASIX [Concomitant]
     Indication: HYPERTENSION
     Route: 065
     Dates: start: 20050101
  5. NITRODERM [Concomitant]
     Route: 065
  6. OXIVENT [Concomitant]
     Route: 055
  7. SERETIDE [Concomitant]
     Route: 065
  8. THEO-DUR [Concomitant]
     Route: 065

REACTIONS (3)
  - BRADYARRHYTHMIA [None]
  - SYNCOPE [None]
  - THERAPEUTIC AGENT TOXICITY [None]
